FAERS Safety Report 24190365 (Version 1)
Quarter: 2024Q3

REPORT INFORMATION
  Report Type: Other
  Country: US (occurrence: US)
  Receive Date: 20240808
  Receipt Date: 20240808
  Transmission Date: 20241017
  Serious: Yes (Hospitalization, Disabling)
  Sender: NOSTRUM
  Company Number: US-Nostrum Laboratories, Inc.-2160182

PATIENT
  Sex: Male

DRUGS (1)
  1. RANITIDINE [Suspect]
     Active Substance: RANITIDINE
     Indication: Gastrooesophageal reflux disease
     Route: 048

REACTIONS (1)
  - Prostate cancer [Unknown]
